FAERS Safety Report 6433189-3 (Version None)
Quarter: 2009Q4

REPORT INFORMATION
  Report Type: 
  Country: None (occurrence: None)
  Receive Date: 20091109
  Receipt Date: 20091104
  Transmission Date: 20100525
  Serious: Yes (Death, Other)
  Sender: FDA-Public Use
  Company Number: PHHY2009CA27354

PATIENT
  Sex: Female

DRUGS (12)
  1. EXJADE [Suspect]
     Indication: MYELODYSPLASTIC SYNDROME
     Dosage: 1 G DAILY
     Route: 048
     Dates: start: 20090517
  2. EXJADE [Suspect]
     Indication: IRON OVERLOAD
     Dosage: 500 MG DAILY
     Route: 048
     Dates: start: 20090521
  3. EXJADE [Suspect]
     Dosage: 1000 MG DAILY
     Route: 048
     Dates: start: 20090521
  4. SYNTHROID [Concomitant]
     Dosage: 0.1 MG, QD
  5. LASIX [Concomitant]
     Dosage: 20 MG, QD
  6. LORAZEPAM [Concomitant]
     Dosage: 1 MG, PRN
  7. FOSAMAX [Concomitant]
  8. ASPIRIN [Concomitant]
  9. GLUCOSAMINE [Concomitant]
  10. TEMAZEPAM [Concomitant]
  11. ARTHROTEC [Concomitant]
  12. MULTI-VITAMINS [Concomitant]

REACTIONS (7)
  - ABDOMINAL DISTENSION [None]
  - ASTHENIA [None]
  - DEATH [None]
  - DIARRHOEA [None]
  - DIZZINESS [None]
  - HEADACHE [None]
  - URINARY TRACT INFECTION [None]
